FAERS Safety Report 7646775-X (Version None)
Quarter: 2011Q3

REPORT INFORMATION
  Report Type: 
  Country: None (occurrence: None)
  Receive Date: 20110801
  Receipt Date: 20110727
  Transmission Date: 20111222
  Serious: Yes (Death, Other)
  Sender: FDA-Public Use
  Company Number: US-AMGEN-USASP2011022329

PATIENT
  Age: 73 Year
  Sex: Male
  Weight: 121.9 kg

DRUGS (2)
  1. CORTICOSTEROIDS [Concomitant]
  2. NPLATE [Suspect]
     Indication: IDIOPATHIC THROMBOCYTOPENIC PURPURA
     Dosage: UNK
     Dates: start: 20100518, end: 20110221

REACTIONS (3)
  - AORTIC OCCLUSION [None]
  - HYPERKALAEMIA [None]
  - ISCHAEMIA [None]
